FAERS Safety Report 23230546 (Version 1)
Quarter: 2023Q4

REPORT INFORMATION
  Report Type: Spontaneous
  Country: CA (occurrence: CA)
  Receive Date: 20231127
  Receipt Date: 20231127
  Transmission Date: 20240110
  Serious: Yes (Death, Hospitalization, Other)
  Sender: FDA-Public Use
  Company Number: CA-009507513-2311CAN008523

PATIENT
  Age: 79 Year
  Sex: Male
  Weight: 63 kg

DRUGS (1)
  1. KEYTRUDA [Suspect]
     Active Substance: PEMBROLIZUMAB
     Indication: Lung squamous cell carcinoma stage IV
     Dosage: 262 MILLIGRAM, ONCE
     Route: 042

REACTIONS (4)
  - Autoimmune myocarditis [Fatal]
  - Myasthenia gravis [Fatal]
  - Myositis [Fatal]
  - Respiratory depression [Fatal]
